FAERS Safety Report 4634291-9 (Version None)
Quarter: 2005Q2

REPORT INFORMATION
  Report Type: 
  Country: None (occurrence: None)
  Receive Date: 20050413
  Receipt Date: 20050316
  Transmission Date: 20051028
  Serious: Yes (Other)
  Sender: FDA-Public Use
  Company Number: PHFR2005GB01239

PATIENT

DRUGS (1)
  1. NEORAL [Suspect]
     Indication: DERMATITIS
     Dosage: UNK, UNK
     Route: 065

REACTIONS (2)
  - CORNEAL TRANSPLANT [None]
  - INFECTION [None]
